FAERS Safety Report 9775862 (Version 1)
Quarter: 2013Q4

REPORT INFORMATION
  Report Type: Spontaneous
  Country: CY (occurrence: CY)
  Receive Date: 20131220
  Receipt Date: 20131220
  Transmission Date: 20140711
  Serious: Yes (Other)
  Sender: FDA-Public Use
  Company Number: CY-GLAXOSMITHKLINE-B0821992A

PATIENT
  Sex: Male
  Weight: 11.7 kg

DRUGS (3)
  1. FLIXOTIDE [Suspect]
     Indication: ASTHMA
     Route: 055
     Dates: start: 201109
  2. SERETIDE [Suspect]
     Indication: ASTHMA
     Route: 055
     Dates: start: 201202
  3. SINGULAIR [Concomitant]
     Route: 065
     Dates: start: 201109

REACTIONS (2)
  - Growth retardation [Not Recovered/Not Resolved]
  - Off label use [Unknown]
